FAERS Safety Report 12371604 (Version 3)
Quarter: 2016Q2

REPORT INFORMATION
  Report Type: Report from Study
  Country: JP (occurrence: JP)
  Receive Date: 20160516
  Receipt Date: 20160530
  Transmission Date: 20160815
  Serious: Yes (Death, Life-Threatening, Hospitalization, Other)
  Sender: FDA-Public Use
  Company Number: JP-009507513-1605JPN005896

PATIENT
  Age: 75 Year
  Sex: Male
  Weight: 55 kg

DRUGS (5)
  1. DAPTOMYCIN. [Suspect]
     Active Substance: DAPTOMYCIN
     Indication: SOFT TISSUE INFECTION
     Dosage: 4 MG/KG, QOD; STRENGTH 350 MG
     Route: 042
     Dates: start: 20160222, end: 20160302
  2. DORIPENEM [Suspect]
     Active Substance: DORIPENEM
     Indication: SOFT TISSUE INFECTION
     Dosage: 0.5 G, TID
     Route: 051
     Dates: start: 20160217, end: 20160302
  3. DORIPENEM [Suspect]
     Active Substance: DORIPENEM
     Indication: SKIN INFECTION
  4. DAPTOMYCIN. [Suspect]
     Active Substance: DAPTOMYCIN
     Indication: SKIN INFECTION
  5. TAKEPRON [Concomitant]
     Active Substance: LANSOPRAZOLE
     Indication: PROPHYLAXIS
     Dosage: 30 MG, BID
     Route: 051
     Dates: start: 20160223, end: 20160301

REACTIONS (4)
  - Hepatic enzyme increased [Not Recovered/Not Resolved]
  - Renal impairment [Not Recovered/Not Resolved]
  - Drug ineffective [Unknown]
  - Multiple organ dysfunction syndrome [Fatal]

NARRATIVE: CASE EVENT DATE: 20160224
